FAERS Safety Report 7195328-9 (Version None)
Quarter: 2010Q4

REPORT INFORMATION
  Report Type: 
  Country: None (occurrence: None)
  Receive Date: 20101223
  Receipt Date: 20100929
  Transmission Date: 20110411
  Serious: No
  Sender: FDA-Public Use
  Company Number: US-AMGEN-KDL441834

PATIENT

DRUGS (5)
  1. ENBREL [Suspect]
     Indication: PRODUCT USED FOR UNKNOWN INDICATION
     Dosage: 50 MG, QWK
     Route: 058
  2. AMLODIPINE [Concomitant]
     Dosage: 5 MG, UNK
  3. METHOTREXATE [Concomitant]
     Dosage: 2.5 MG, UNK
  4. ACETAMINOPHEN AND HYDROCODONE BITARTRATE [Concomitant]
     Dosage: UNK UNK, UNK
  5. BENAZEPRIL [Concomitant]
     Dosage: 5 MG, UNK

REACTIONS (3)
  - EYE PRURITUS [None]
  - RHINORRHOEA [None]
  - SNEEZING [None]
